FAERS Safety Report 24784855 (Version 2)
Quarter: 2025Q1

REPORT INFORMATION
  Report Type: Spontaneous
  Country: IN (occurrence: IN)
  Receive Date: 20241228
  Receipt Date: 20250207
  Transmission Date: 20250409
  Serious: Yes (Death, Other)
  Sender: ROCHE
  Company Number: IN-ROCHE-10000087479

PATIENT
  Age: 74 Year
  Sex: Male

DRUGS (1)
  1. TECENTRIQ [Suspect]
     Active Substance: ATEZOLIZUMAB
     Indication: Prostate cancer
     Route: 042
     Dates: start: 20240723

REACTIONS (3)
  - Off label use [Unknown]
  - Pancytopenia [Recovered/Resolved]
  - Death [Fatal]
